FAERS Safety Report 25001708 (Version 1)
Quarter: 2025Q1

REPORT INFORMATION
  Report Type: Spontaneous
  Country: BE (occurrence: BE)
  Receive Date: 20250223
  Receipt Date: 20250223
  Transmission Date: 20250408
  Serious: Yes (Hospitalization, Other)
  Sender: SOLA PHARMACEUTICALS
  Company Number: BE-SOLA PHARMACEUTICALS-20250200009

PATIENT

DRUGS (1)
  1. DIMETHYL FUMARATE [Suspect]
     Active Substance: DIMETHYL FUMARATE
     Indication: Multiple sclerosis
     Route: 065

REACTIONS (2)
  - Viral vasculitis [Recovered/Resolved]
  - Varicella zoster virus infection [Recovered/Resolved]
